FAERS Safety Report 4657620-9 (Version None)
Quarter: 2005Q2

REPORT INFORMATION
  Report Type: 
  Country: None (occurrence: None)
  Receive Date: 20050510
  Receipt Date: 20040730
  Transmission Date: 20051028
  Serious: Yes (Death, Hospitalization, Other)
  Sender: FDA-Public Use
  Company Number: PHHO2004IN10805

PATIENT
  Age: 40 Year
  Sex: Female

DRUGS (2)
  1. FOLIC ACID [Concomitant]
  2. GLEEVEC [Suspect]
     Indication: CHRONIC MYELOID LEUKAEMIA
     Dosage: 400 MG, QD
     Route: 048
     Dates: start: 20040506, end: 20040628

REACTIONS (10)
  - BLAST CRISIS IN MYELOGENOUS LEUKAEMIA [None]
  - CANDIDA SEROLOGY POSITIVE [None]
  - CYTOMEGALOVIRUS ANTIGEN POSITIVE [None]
  - ENTEROCOCCAL INFECTION [None]
  - FEBRILE NEUTROPENIA [None]
  - HEPATOSPLENOMEGALY [None]
  - LUNG DISORDER [None]
  - PNEUMONIA [None]
  - RENAL DISORDER [None]
  - SEPSIS [None]
